FAERS Safety Report 24735310 (Version 1)
Quarter: 2024Q4

REPORT INFORMATION
  Report Type: Spontaneous
  Country: US (occurrence: US)
  Receive Date: 20241215
  Receipt Date: 20241215
  Transmission Date: 20250114
  Serious: Yes (Hospitalization, Other)
  Sender: AMNEAL
  Company Number: US-AMNEAL PHARMACEUTICALS-2024-AMRX-04496

PATIENT
  Age: 86 Year
  Sex: Male

DRUGS (2)
  1. DEFERASIROX [Suspect]
     Active Substance: DEFERASIROX
     Indication: Serum ferritin increased
     Dosage: UNK
     Route: 065
  2. DEFERASIROX [Suspect]
     Active Substance: DEFERASIROX
     Dosage: UNK
     Route: 065

REACTIONS (1)
  - Atypical haemolytic uraemic syndrome [Recovered/Resolved]
